FAERS Safety Report 4880985-X (Version None)
Quarter: 2005Q4

REPORT INFORMATION
  Report Type: 
  Country: None (occurrence: None)
  Receive Date: 20051223
  Receipt Date: 20051104
  Transmission Date: 20060501
  Serious: Yes (Hospitalization)
  Sender: FDA-Public Use
  Company Number: 05P-163-0316497-00

PATIENT
  Age: 20 Year
  Sex: Female
  Weight: 61.6892 kg

DRUGS (11)
  1. HUMIRA [Suspect]
     Indication: INFLAMMATORY BOWEL DISEASE
     Dosage: 40 MG, 1 IN 2 WK, SUBCUTANEOUS
     Route: 058
     Dates: start: 20050722
  2. PAROXETINE HYDROCHLORIDE [Concomitant]
  3. CETIRIZINE HYDROCHLORIDE [Concomitant]
  4. SERETIDE MITE [Concomitant]
  5. MERCAPTOPURINE [Concomitant]
  6. MESALAMINE [Concomitant]
  7. BUDESONIDE [Concomitant]
  8. SALBUTAMOL [Concomitant]
  9. ALBUTEROL [Concomitant]
  10. FAMCICLOVIR [Concomitant]
  11. YASMIN [Concomitant]

REACTIONS (1)
  - PANCYTOPENIA [None]
